FAERS Safety Report 8957769 (Version 1)
Quarter: 2012Q4

REPORT INFORMATION
  Report Type: 
  Country: FR (occurrence: FR)
  Receive Date: 20121211
  Receipt Date: 20121211
  Transmission Date: 20130627
  Serious: Yes (Death)
  Sender: FDA-Public Use
  Company Number: FR-ROCHE-1166914

PATIENT
  Age: 61 Year
  Sex: Female

DRUGS (3)
  1. XELODA [Suspect]
     Indication: BREAST CANCER METASTATIC
     Route: 065
     Dates: start: 201209
  2. XELODA [Suspect]
     Route: 065
     Dates: start: 201210
  3. HALAVEN [Suspect]
     Indication: BREAST CANCER METASTATIC
     Route: 042
     Dates: start: 201210

REACTIONS (2)
  - Febrile bone marrow aplasia [Fatal]
  - Multi-organ failure [Fatal]
